FAERS Safety Report 6484022-5 (Version None)
Quarter: 2009Q4

REPORT INFORMATION
  Report Type: 
  Country: None (occurrence: None)
  Receive Date: 20091208
  Receipt Date: 20091208
  Transmission Date: 20100525
  Serious: No
  Sender: FDA-Public Use
  Company Number: None

PATIENT
  Age: 62 Year
  Sex: Female
  Weight: 68.0396 kg

DRUGS (2)
  1. COLD REMEDY ORAL MIST [Suspect]
     Dosage: Q 4-5 HRS
     Dates: start: 20091108, end: 20091110
  2. COLD REMEDY ORAL MIST [Suspect]
     Dosage: Q 4-5 HRS
     Dates: start: 20091108, end: 20091110

REACTIONS (2)
  - AGEUSIA [None]
  - ANOSMIA [None]
